FAERS Safety Report 6491365-8 (Version None)
Quarter: 2009Q4

REPORT INFORMATION
  Report Type: 
  Country: None (occurrence: None)
  Receive Date: 20091211
  Receipt Date: 20081214
  Transmission Date: 20100525
  Serious: Yes (Other)
  Sender: FDA-Public Use
  Company Number: PHEH2008US11778

PATIENT

DRUGS (1)
  1. RECLAST [Suspect]
     Route: 042

REACTIONS (3)
  - CARDIAC FLUTTER [None]
  - DISCOMFORT [None]
  - SUPRAVENTRICULAR EXTRASYSTOLES [None]
